FAERS Safety Report 5711680-2 (Version None)
Quarter: 2008Q2

REPORT INFORMATION
  Report Type: 
  Country: None (occurrence: None)
  Receive Date: 20080421
  Receipt Date: 20080409
  Transmission Date: 20081010
  Serious: Yes (Other)
  Sender: FDA-Public Use
  Company Number: US-PFIZER INC-2008003996

PATIENT
  Sex: Female
  Weight: 72.6 kg

DRUGS (2)
  1. CHANTIX [Suspect]
     Indication: SMOKER
     Route: 048
  2. LIPITOR [Concomitant]

REACTIONS (2)
  - BILIARY TRACT DISORDER [None]
  - LIVER FUNCTION TEST ABNORMAL [None]
